FAERS Safety Report 9893096 (Version 2)
Quarter: 2016Q3

REPORT INFORMATION
  Report Type: Spontaneous
  Country: TR (occurrence: TR)
  Receive Date: 20140213
  Receipt Date: 20160722
  Transmission Date: 20161109
  Serious: Yes (Other)
  Sender: FDA-Public Use
  Company Number: TR-BRISTOL-MYERS SQUIBB COMPANY-20169314

PATIENT
  Age: 63 Year
  Sex: Female

DRUGS (2)
  1. HERBAL MIXTURE [Interacting]
     Active Substance: HERBALS
     Indication: ARTHRALGIA
     Route: 065
  2. WARFARIN SODIUM. [Suspect]
     Active Substance: WARFARIN SODIUM
     Indication: PULMONARY EMBOLISM
     Dosage: 5 MG, QD
     Route: 065

REACTIONS (3)
  - Haematuria [Recovered/Resolved]
  - Rash [Recovered/Resolved]
  - Drug interaction [Unknown]
